FAERS Safety Report 8862695 (Version 1)
Quarter: 2012Q4

REPORT INFORMATION
  Report Type: 
  Country: US (occurrence: US)
  Receive Date: 20121026
  Receipt Date: 20121026
  Transmission Date: 20130627
  Serious: No
  Sender: FDA-Public Use
  Company Number: US-B.I. PHARMACEUTICALS,INC./RIDGEFIELD-2012-BP-26246BP

PATIENT
  Age: 54 None
  Sex: Female
  Weight: 87 kg

DRUGS (4)
  1. SPIRIVA [Suspect]
     Indication: CHRONIC OBSTRUCTIVE PULMONARY DISEASE
     Dosage: 18 mcg
     Route: 055
  2. SPIRIVA [Suspect]
     Route: 048
  3. ANTIDEPRESSANT [Concomitant]
     Indication: DEPRESSION
     Route: 048
  4. BLOOD PRESSURE MEDICATION [Concomitant]
     Indication: HYPERTENSION
     Route: 048

REACTIONS (5)
  - Product quality issue [Unknown]
  - Wheezing [Not Recovered/Not Resolved]
  - Incorrect route of drug administration [Recovered/Resolved]
  - Drug ineffective [Unknown]
  - Medication error [Unknown]
